FAERS Safety Report 9600921 (Version 2)
Quarter: 2013Q4

REPORT INFORMATION
  Report Type: Spontaneous
  Country: US (occurrence: US)
  Receive Date: 20131004
  Receipt Date: 20131004
  Transmission Date: 20140711
  Serious: No
  Sender: FDA-Public Use
  Company Number: US-AMGEN-USASP2013022611

PATIENT
  Age: 55 Year
  Sex: Female

DRUGS (2)
  1. ENBREL [Suspect]
     Indication: PSORIASIS
     Dosage: 50 MG, 2 TIMES/WK
     Route: 065
     Dates: start: 20121121
  2. METHOTREXATE [Concomitant]
     Dosage: 10 UNK, UNK
     Dates: start: 2009, end: 201212

REACTIONS (1)
  - Psoriasis [Not Recovered/Not Resolved]
